FAERS Safety Report 4559025-8 (Version None)
Quarter: 2005Q1

REPORT INFORMATION
  Report Type: 
  Country: None (occurrence: None)
  Receive Date: 20050119
  Receipt Date: 20050113
  Transmission Date: 20050727
  Serious: Yes (Hospitalization)
  Sender: FDA-Public Use
  Company Number: TPA2005A00050

PATIENT
  Sex: Male

DRUGS (2)
  1. ACTOS [Suspect]
     Indication: DIABETES MELLITUS NON-INSULIN-DEPENDENT
     Dosage: 15MG, 1 IN 1 D, PER ORAL
     Route: 048
     Dates: start: 20040101
  2. NORVASC [Concomitant]

REACTIONS (2)
  - EYE SWELLING [None]
  - INTERVERTEBRAL DISC DISORDER [None]
